FAERS Safety Report 22766300 (Version 2)
Quarter: 2024Q1

REPORT INFORMATION
  Report Type: Spontaneous
  Country: NL (occurrence: NL)
  Receive Date: 20230731
  Receipt Date: 20240103
  Transmission Date: 20240410
  Serious: Yes (Other)
  Sender: FDA-Public Use
  Company Number: None

PATIENT
  Age: 46 Year
  Sex: Female
  Weight: 93 kg

DRUGS (15)
  1. PAMIDRONATE DISODIUM [Suspect]
     Active Substance: PAMIDRONATE DISODIUM
     Indication: Osteoporosis
     Dosage: 30 MG EVERY 3 MONTHS
     Dates: start: 19980101, end: 20150101
  2. URSODIOL [Concomitant]
     Active Substance: URSODIOL
     Dosage: TABLET, 450 MG (MILLIGRAM)
  3. ESOMEPRAZOLE [Concomitant]
     Active Substance: ESOMEPRAZOLE
     Dosage: GASTRO-RESISTANT CAPSULE, 20 MG (MILLIGRAM)
  4. ATORVASTATIN [Concomitant]
     Active Substance: ATORVASTATIN
     Dosage: TABLET, 40 MG (MILLIGRAM)
  5. ALGELDRATE/MAGNESIUM HYDROXIDE [Concomitant]
     Dosage: SUSPENSION, 40/20 MG/ML (MILLIGRAM PER MILLILITER)
     Route: 048
  6. CLORAZEPATE DIPOTASSIUM [Concomitant]
     Active Substance: CLORAZEPATE DIPOTASSIUM
     Dosage: CAPSULE, 5 MG (MILLIGRAM)
  7. FAMOTIDINE [Concomitant]
     Active Substance: FAMOTIDINE
     Dosage: TABLET, 20 MG (MILLIGRAM)
  8. POLYETHYLENE GLYCOLS [Concomitant]
     Active Substance: POLYETHYLENE GLYCOLS
     Dosage: POWDER FOR ORAL SOLUTION 1 G/G
  9. DULOXETINE [Concomitant]
     Active Substance: DULOXETINE
     Dosage: GASTRO-RESISTANT CAPSULE, 60 MG
  10. METOPROLOL [Concomitant]
     Active Substance: METOPROLOL
     Dosage: MODIFIED-RELEASE TABLET, 100 MG
  11. ASPIRIN [Concomitant]
     Active Substance: ASPIRIN
     Dosage: TABLET, 80 MG (MILLIGRAM)
  12. METFORMIN HYDROCHLORIDE [Concomitant]
     Active Substance: METFORMIN HYDROCHLORIDE
     Dosage: TABLET, 500 MG (MILLIGRAM)
  13. CALCIUMCARBONAAT [Concomitant]
     Dosage: SACHET (EFFERVESCENT GRANULES), 1.25 G (GRAM)/880 UNITS
  14. PERINDOPRIL [Concomitant]
     Active Substance: PERINDOPRIL
     Dosage: TABLET, 4 MG (MILLIGRAM)
  15. PREDNISOLONE [Concomitant]
     Active Substance: PREDNISOLONE
     Dosage: TABLET, 5 MG (MILLIGRAM)

REACTIONS (2)
  - Femur fracture [Not Recovered/Not Resolved]
  - Off label use [Unknown]

NARRATIVE: CASE EVENT DATE: 19980101
